FAERS Safety Report 5680235-0 (Version None)
Quarter: 2008Q1

REPORT INFORMATION
  Report Type: 
  Country: None (occurrence: None)
  Receive Date: 20080326
  Receipt Date: 20080314
  Transmission Date: 20080703
  Serious: Yes (Other)
  Sender: FDA-Public Use
  Company Number: DE-ELI_LILLY_AND_COMPANY-DE200803004245

PATIENT
  Sex: Female

DRUGS (2)
  1. GEMZAR [Suspect]
     Indication: NON-SMALL CELL LUNG CANCER
     Dosage: 2162.5 MG, UNKNOWN
     Route: 042
     Dates: start: 20080305
  2. CISPLATIN [Concomitant]
     Indication: NON-SMALL CELL LUNG CANCER
     Dosage: 62.9 MG, UNKNOWN
     Route: 042
     Dates: start: 20080305

REACTIONS (2)
  - NEPHRITIS [None]
  - TRANSAMINASES INCREASED [None]
